FAERS Safety Report 12760331 (Version 10)
Quarter: 2017Q3

REPORT INFORMATION
  Report Type: Report from Study
  Country: FR (occurrence: FR)
  Receive Date: 20160919
  Receipt Date: 20170704
  Transmission Date: 20171127
  Serious: Yes (Hospitalization, Other)
  Sender: FDA-Public Use
  Company Number: PHHY2015FR150520

PATIENT
  Age: 58 Year
  Sex: Male

DRUGS (19)
  1. MYFORTIC [Suspect]
     Active Substance: MYCOPHENOLATE SODIUM
     Indication: IMMUNOSUPPRESSANT DRUG THERAPY
     Dosage: 1440 MG, QD
     Route: 065
     Dates: start: 20140701, end: 20160104
  2. ADVAGRAF [Suspect]
     Active Substance: TACROLIMUS
     Dosage: 6 MG, QD
     Route: 065
     Dates: start: 20151103, end: 20151110
  3. ADVAGRAF [Suspect]
     Active Substance: TACROLIMUS
     Dosage: 12 MG, QD
     Route: 065
     Dates: start: 20151217, end: 20151223
  4. LYRICA [Suspect]
     Active Substance: PREGABALIN
     Indication: PRODUCT USED FOR UNKNOWN INDICATION
     Route: 065
  5. ADVAGRAF [Suspect]
     Active Substance: TACROLIMUS
     Dosage: 6 MG, QD
     Route: 065
     Dates: start: 20151223, end: 20160115
  6. INIPOMP [Concomitant]
     Active Substance: PANTOPRAZOLE SODIUM
     Indication: PROPHYLAXIS
     Dosage: 40 MG, QD
     Route: 048
     Dates: start: 20140212
  7. ADVAGRAF [Suspect]
     Active Substance: TACROLIMUS
     Dosage: 3 MG, QD
     Route: 065
     Dates: start: 20160115, end: 20160204
  8. CERTICAN [Suspect]
     Active Substance: EVEROLIMUS
     Indication: LIVER TRANSPLANT
     Dosage: 2 MG, QD
     Route: 048
     Dates: start: 20151103, end: 20151210
  9. ADVAGRAF [Suspect]
     Active Substance: TACROLIMUS
     Indication: IMMUNOSUPPRESSANT DRUG THERAPY
     Dosage: 10 MG, QD
     Route: 065
     Dates: start: 20140701, end: 20140901
  10. CERTICAN [Suspect]
     Active Substance: EVEROLIMUS
     Indication: IMMUNOSUPPRESSANT DRUG THERAPY
     Dosage: 1 MG, QD
     Route: 048
     Dates: start: 20151223, end: 20160114
  11. MYFORTIC [Suspect]
     Active Substance: MYCOPHENOLATE SODIUM
     Dosage: 720 MG, BID
     Route: 065
     Dates: start: 20160115
  12. ADVAGRAF [Suspect]
     Active Substance: TACROLIMUS
     Dosage: 12 MG, QD
     Route: 065
     Dates: start: 20141227, end: 20150716
  13. ADVAGRAF [Suspect]
     Active Substance: TACROLIMUS
     Dosage: 11 MG, QD
     Route: 065
     Dates: start: 20150717, end: 20151103
  14. KARDEGIC [Concomitant]
     Active Substance: ASPIRIN LYSINE
     Indication: THROMBOSIS PROPHYLAXIS
     Dosage: 75 MG, QD
     Route: 065
     Dates: start: 20140210
  15. CERTICAN [Suspect]
     Active Substance: EVEROLIMUS
     Dosage: 2 MG, QD
     Route: 048
     Dates: start: 20160115
  16. MYFORTIC [Suspect]
     Active Substance: MYCOPHENOLATE SODIUM
     Indication: LIVER TRANSPLANT
     Dosage: 1440 MG, QD
     Route: 065
     Dates: start: 20140124
  17. ADVAGRAF [Suspect]
     Active Substance: TACROLIMUS
     Dosage: 11 MG, QD
     Route: 065
     Dates: start: 20140902, end: 20141226
  18. ADVAGRAF [Suspect]
     Active Substance: TACROLIMUS
     Dosage: 10 MG, QD
     Route: 065
     Dates: start: 20151207, end: 20151210
  19. INEXIUM [Concomitant]
     Active Substance: ESOMEPRAZOLE
     Indication: PROPHYLAXIS
     Dosage: 40 MG, UNK
     Route: 065
     Dates: start: 20140701

REACTIONS (49)
  - Cholestasis [Not Recovered/Not Resolved]
  - Nausea [Recovered/Resolved]
  - Asthenia [Recovered/Resolved]
  - Vomiting [Recovered/Resolved]
  - Cholestasis [Recovered/Resolved]
  - Pancreas infection [Recovered/Resolved]
  - Lung disorder [Recovered/Resolved]
  - Fatigue [Recovered/Resolved]
  - Asthenia [Recovered/Resolved]
  - Renal failure [Not Recovered/Not Resolved]
  - Liver abscess [Recovered/Resolved]
  - Biliary dilatation [Unknown]
  - Hernia [Recovered/Resolved]
  - Irritability [Not Recovered/Not Resolved]
  - Pyrexia [Recovered/Resolved]
  - Anastomotic stenosis [Recovered/Resolved]
  - Anaemia [Recovered/Resolved]
  - Dehydration [Recovered/Resolved]
  - Gastritis [Recovered/Resolved]
  - Pain [Recovered/Resolved]
  - Dizziness [Recovered/Resolved]
  - Pancreatic necrosis [Recovered/Resolved]
  - Abdominal pain upper [Not Recovered/Not Resolved]
  - Urinary tract infection [Recovered/Resolved]
  - Diverticulum [Not Recovered/Not Resolved]
  - Anaemia [Recovered/Resolved]
  - Pancreatitis acute [Recovered/Resolved]
  - Biliary tract infection [Recovered/Resolved]
  - Tongue fungal infection [Unknown]
  - Constipation [Recovered/Resolved]
  - Hypertension [Not Recovered/Not Resolved]
  - Ageusia [Recovered/Resolved]
  - Decreased appetite [Recovered/Resolved]
  - Weight decreased [Recovered/Resolved]
  - Diarrhoea [Recovered/Resolved]
  - Biliary tract disorder [Not Recovered/Not Resolved]
  - Fear [Recovered/Resolved]
  - Inflammation [Recovered/Resolved]
  - General physical condition abnormal [Recovered/Resolved]
  - Anastomotic stenosis [Recovered/Resolved]
  - Hyponatraemia [Recovered/Resolved]
  - Gamma-glutamyltransferase increased [Recovered/Resolved]
  - Herpes zoster [Recovered/Resolved]
  - Sleep disorder [Recovered/Resolved]
  - Liver abscess [Recovered/Resolved]
  - Weight increased [Unknown]
  - Hyperglycaemia [Unknown]
  - Anaemia [Recovered/Resolved]
  - Anaemia [Recovered/Resolved]

NARRATIVE: CASE EVENT DATE: 20140212
